FAERS Safety Report 7313719-X (Version None)
Quarter: 2011Q1

REPORT INFORMATION
  Report Type: 
  Country: None (occurrence: None)
  Receive Date: 20110225
  Receipt Date: 20110125
  Transmission Date: 20110831
  Serious: Yes (Death)
  Sender: FDA-Public Use
  Company Number: US-TYCO HEALTHCARE/MALLINCKRODT-T201100360

PATIENT
  Age: 47 Year
  Sex: Male

DRUGS (5)
  1. METHADOSE [Suspect]
  2. ALPRAZOLAM [Suspect]
  3. HYDROCODONE BITARTRATE + ACETAMINOPHEN [Suspect]
  4. ETHANOL [Suspect]
  5. PHENOBARBITAL TAB [Suspect]

REACTIONS (1)
  - CARDIO-RESPIRATORY ARREST [None]
